FAERS Safety Report 11421545 (Version 3)
Quarter: 2016Q1

REPORT INFORMATION
  Report Type: Spontaneous
  Country: IT (occurrence: IT)
  Receive Date: 20150826
  Receipt Date: 20160331
  Transmission Date: 20160525
  Serious: Yes (Hospitalization)
  Sender: FDA-Public Use
  Company Number: IT-009507513-1508ITA008876

PATIENT
  Age: 48 Year
  Sex: Male

DRUGS (3)
  1. EFFEXOR [Suspect]
     Active Substance: VENLAFAXINE HYDROCHLORIDE
     Indication: DRUG ABUSE
     Dosage: TOTAL DAILY DOSE: 20 DOSE UNITS
     Route: 048
     Dates: start: 20150510, end: 20150510
  2. LYRICA [Suspect]
     Active Substance: PREGABALIN
     Indication: DRUG ABUSE
     Dosage: TOTAL DAILY DOSE: 42 DOSE UNITS
     Route: 048
     Dates: start: 20150510, end: 20150510
  3. MIRTAZAPINE. [Suspect]
     Active Substance: MIRTAZAPINE
     Indication: DRUG ABUSE
     Dosage: TOTAL DAILY DOSE: 600 MG
     Route: 048
     Dates: start: 20150510, end: 20150510

REACTIONS (2)
  - Sopor [Recovered/Resolved]
  - Toxicity to various agents [Recovered/Resolved]

NARRATIVE: CASE EVENT DATE: 20150510
